FAERS Safety Report 22773556 (Version 3)
Quarter: 2023Q4

REPORT INFORMATION
  Report Type: Spontaneous
  Country: US (occurrence: US)
  Receive Date: 20230801
  Receipt Date: 20231019
  Transmission Date: 20240110
  Serious: Yes (Death)
  Sender: FDA-Public Use
  Company Number: US-PFIZER INC-PV202300072947

PATIENT
  Age: 67 Year
  Sex: Male
  Weight: 106.59 kg

DRUGS (2)
  1. VYNDAMAX [Suspect]
     Active Substance: TAFAMIDIS
     Indication: Amyloidosis
     Dosage: 61 MG, 1X/DAY
  2. ACETAMINOPHEN\NIMESULIDE [Concomitant]
     Active Substance: ACETAMINOPHEN\NIMESULIDE
     Indication: Fluid retention
     Dosage: UNK

REACTIONS (2)
  - Death [Fatal]
  - Therapeutic response unexpected [Unknown]

NARRATIVE: CASE EVENT DATE: 20231010
